FAERS Safety Report 4407705-7 (Version None)
Quarter: 2004Q3

REPORT INFORMATION
  Report Type: 
  Country: None (occurrence: None)
  Receive Date: 20040726
  Receipt Date: 20040714
  Transmission Date: 20050211
  Serious: Yes (Life-Threatening, Hospitalization, Other)
  Sender: FDA-Public Use
  Company Number: AE-MERCK-0407USA01274

PATIENT
  Age: 51 Year
  Sex: Male

DRUGS (6)
  1. ASPIRIN [Concomitant]
     Route: 048
  2. DIAMICRON MR [Concomitant]
     Route: 048
  3. GLUCOPHAGE [Concomitant]
     Route: 048
  4. COVERSYL [Concomitant]
     Route: 048
  5. VIOXX [Suspect]
     Indication: ARTHRALGIA
     Route: 048
     Dates: start: 20040618, end: 20040619
  6. ZOCOR [Concomitant]
     Route: 048

REACTIONS (4)
  - CARDIAC FAILURE [None]
  - LEFT VENTRICULAR FAILURE [None]
  - OEDEMA PERIPHERAL [None]
  - PULMONARY OEDEMA [None]
